FAERS Safety Report 10663670 (Version 1)
Quarter: 2014Q4

REPORT INFORMATION
  Report Type: Spontaneous
  Country: JP (occurrence: JP)
  Receive Date: 20141219
  Receipt Date: 20141219
  Transmission Date: 20150529
  Serious: Yes (Other)
  Sender: FDA-Public Use
  Company Number: JP-ACCORD-027632

PATIENT
  Age: 64 Year
  Sex: Male

DRUGS (3)
  1. CALCIUM FOLINATE/FOLINIC ACID [Suspect]
     Active Substance: LEUCOVORIN CALCIUM
     Indication: COLORECTAL CANCER
  2. FLUOROURACIL. [Suspect]
     Active Substance: FLUOROURACIL
     Indication: COLORECTAL CANCER
  3. OXALIPLATIN. [Suspect]
     Active Substance: OXALIPLATIN
     Indication: COLORECTAL CANCER

REACTIONS (2)
  - Hiccups [None]
  - Lactic acidosis [Recovered/Resolved]
